FAERS Safety Report 14233779 (Version 4)
Quarter: 2018Q1

REPORT INFORMATION
  Report Type: Report from Study
  Country: None (occurrence: BE)
  Receive Date: 20171129
  Receipt Date: 20180305
  Transmission Date: 20180508
  Serious: Yes (Hospitalization, Other)
  Sender: FDA-Public Use
  Company Number: BE-ABBVIE-17K-013-2159689-00

PATIENT
  Sex: Male

DRUGS (10)
  1. MIRAPEXIN [Concomitant]
     Active Substance: PRAMIPEXOLE
  2. PROLOPA 125 DISP [Concomitant]
     Indication: PARKINSON^S DISEASE
     Dosage: FORM STRENGTH: 100MG/25MG, WHEN NEEDED
     Route: 048
  3. PROLOPA 125 DISP [Concomitant]
     Dosage: PARKINSON RESCUE MEDICATION
  4. DUODOPA [Suspect]
     Active Substance: CARBIDOPA\LEVODOPA
     Indication: PARKINSON^S DISEASE
     Dosage: MD: 8 ML??CD: 4.9 ML/HR DURING 16 HRS??ED: 3 ML
     Route: 050
     Dates: start: 20130403, end: 20130419
  5. DUODOPA [Suspect]
     Active Substance: CARBIDOPA\LEVODOPA
     Dosage: MD: 8 ML?CD=4.4ML/HR DURING 16HRS?ED=3.5ML
     Route: 050
     Dates: start: 20180104
  6. MIRAPEXIN [Concomitant]
     Active Substance: PRAMIPEXOLE
     Indication: PARKINSON^S DISEASE
     Route: 048
  7. DUODOPA [Suspect]
     Active Substance: CARBIDOPA\LEVODOPA
     Dosage: MD: 8 ML?CD:3.8 ML/HR DURING 16 HRS?ED: 3 ML
     Route: 050
     Dates: start: 20171207, end: 20180102
  8. DUODOPA [Suspect]
     Active Substance: CARBIDOPA\LEVODOPA
     Dosage: MD: 8 ML?CD:4.1 ML/HR DURING 16 HRS?ED: 3 ML
     Route: 050
     Dates: start: 20180102, end: 20180104
  9. DUODOPA [Suspect]
     Active Substance: CARBIDOPA\LEVODOPA
     Dosage: MD: 8 ML??CD:3.5 ML/HR DURING 16 HRS??ED: 3 ML
     Route: 050
     Dates: start: 20151112, end: 20171207
  10. DUODOPA [Suspect]
     Active Substance: CARBIDOPA\LEVODOPA
     Dosage: DOSES CONTINUOUSLY MONITORED AND ADAPTED
     Route: 050
     Dates: start: 20130419, end: 20151112

REACTIONS (6)
  - Malaise [Unknown]
  - Gait disturbance [Unknown]
  - Stoma site erythema [Not Recovered/Not Resolved]
  - Arthropathy [Recovering/Resolving]
  - Stress [Unknown]
  - Drug ineffective [Unknown]
